FAERS Safety Report 7312117-2 (Version None)
Quarter: 2011Q1

REPORT INFORMATION
  Report Type: 
  Country: None (occurrence: None)
  Receive Date: 20110224
  Receipt Date: 20110209
  Transmission Date: 20110831
  Serious: Yes (Hospitalization, Other)
  Sender: FDA-Public Use
  Company Number: PHHY2011US10453

PATIENT
  Age: 36 Year
  Sex: Female

DRUGS (5)
  1. DROTRECOGIN ALFA [Concomitant]
     Dosage: UNK
  2. GENTAMICIN [Concomitant]
     Route: 033
  3. HYDROXYCHLOROQUINE [Concomitant]
  4. PREDNISONE [Suspect]
  5. VANCOMYCIN [Concomitant]
     Route: 042

REACTIONS (22)
  - SEPSIS SYNDROME [None]
  - BACTERAEMIA [None]
  - HYPOTENSION [None]
  - BLOOD UREA INCREASED [None]
  - BLOOD CREATININE INCREASED [None]
  - SCRATCH [None]
  - CONFUSIONAL STATE [None]
  - ABDOMINAL PAIN [None]
  - PASTEURELLA INFECTION [None]
  - HEART RATE INCREASED [None]
  - BLOOD POTASSIUM DECREASED [None]
  - PERITONITIS [None]
  - BLOOD ALBUMIN DECREASED [None]
  - PYREXIA [None]
  - RESPIRATORY FAILURE [None]
  - LETHARGY [None]
  - VOMITING [None]
  - MALAISE [None]
  - CIRCULATORY COLLAPSE [None]
  - ISCHAEMIA [None]
  - NAUSEA [None]
  - GASTROINTESTINAL HAEMORRHAGE [None]
